FAERS Safety Report 6322942-2 (Version None)
Quarter: 2009Q3

REPORT INFORMATION
  Report Type: 
  Country: None (occurrence: None)
  Receive Date: 20090824
  Receipt Date: 20090223
  Transmission Date: 20100115
  Serious: No
  Sender: FDA-Public Use
  Company Number: US-ABBOTT-09P-163-0558795-00

PATIENT
  Sex: Female

DRUGS (19)
  1. NIASPAN [Suspect]
     Indication: BLOOD CHOLESTEROL INCREASED
     Route: 048
     Dates: start: 20090216
  2. NIASPAN [Suspect]
     Indication: LOW DENSITY LIPOPROTEIN INCREASED
  3. NIASPAN [Suspect]
     Indication: HIGH DENSITY LIPOPROTEIN DECREASED
  4. NIASPAN [Suspect]
     Indication: BLOOD TRIGLYCERIDES INCREASED
  5. INSULIN [Concomitant]
     Indication: DRUG USE FOR UNKNOWN INDICATION
  6. LYRICA [Concomitant]
     Indication: DRUG USE FOR UNKNOWN INDICATION
  7. LISINOPRIL [Concomitant]
     Indication: DRUG USE FOR UNKNOWN INDICATION
  8. PROMETHAZINE [Concomitant]
     Indication: DRUG USE FOR UNKNOWN INDICATION
  9. HYOSCYAMINE [Concomitant]
     Indication: DRUG USE FOR UNKNOWN INDICATION
  10. TRAZODONE HCL [Concomitant]
     Indication: DRUG USE FOR UNKNOWN INDICATION
  11. MSM [Concomitant]
     Indication: DRUG USE FOR UNKNOWN INDICATION
  12. FOLIC ACID [Concomitant]
     Indication: DRUG USE FOR UNKNOWN INDICATION
  13. SINGULAIR [Concomitant]
     Indication: DRUG USE FOR UNKNOWN INDICATION
  14. FERROUS SULFATE TAB [Concomitant]
     Indication: DRUG USE FOR UNKNOWN INDICATION
  15. PYRIDOXINE HCL [Concomitant]
     Indication: DRUG USE FOR UNKNOWN INDICATION
  16. VITAMIN B-12 [Concomitant]
     Indication: DRUG USE FOR UNKNOWN INDICATION
  17. FENTANYL [Concomitant]
     Indication: DRUG USE FOR UNKNOWN INDICATION
  18. CLORAZEPATE DIPOTASSIUM [Concomitant]
     Indication: DRUG USE FOR UNKNOWN INDICATION
  19. OTHER UNKNOWN MEDICATIONS [Concomitant]
     Indication: DRUG USE FOR UNKNOWN INDICATION

REACTIONS (1)
  - FLUSHING [None]
